FAERS Safety Report 15080491 (Version 1)
Quarter: 2018Q3

REPORT INFORMATION
  Report Type: Spontaneous
  Country: NL (occurrence: NL)
  Receive Date: 20180628
  Receipt Date: 20180628
  Transmission Date: 20181010
  Serious: Yes (Other)
  Sender: FDA-Public Use
  Company Number: NL-TEVA-2018-NL-914958

PATIENT
  Age: 72 Year
  Sex: Male

DRUGS (3)
  1. OMEPRAZOL 20MG [Concomitant]
     Route: 065
  2. TAMSULOSINE HCL TEVA RETARD CAPSULE MGA 0,4MG CAPSULE MET GEREGULEERDE [Suspect]
     Active Substance: TAMSULOSIN
     Indication: NEPHROLITHIASIS
     Dosage: .4 MILLIGRAM DAILY; 1X PER DAY 1 TABLET
     Route: 065
     Dates: start: 20180314, end: 20180424
  3. DICLOFENAC 100MG [Concomitant]
     Route: 065

REACTIONS (2)
  - Visual impairment [Not Recovered/Not Resolved]
  - Macular degeneration [Not Recovered/Not Resolved]

NARRATIVE: CASE EVENT DATE: 20180424
